FAERS Safety Report 10786469 (Version 1)
Quarter: 2015Q1

REPORT INFORMATION
  Report Type: Spontaneous
  Country: US (occurrence: US)
  Receive Date: 20150211
  Receipt Date: 20150211
  Transmission Date: 20150721
  Serious: No
  Sender: FDA-Public Use
  Company Number: US-GLAXOSMITHKLINE-A1087680A

PATIENT

DRUGS (4)
  1. ROPINIROLE TABLETS [Suspect]
     Active Substance: ROPINIROLE
     Indication: PARKINSON^S DISEASE
     Route: 048
     Dates: start: 20140801
  2. AMANTADINE [Concomitant]
     Active Substance: AMANTADINE
  3. SINEMET [Concomitant]
     Active Substance: CARBIDOPA\LEVODOPA
  4. SINEMET PROLONGED-RELEASE TABLET [Concomitant]

REACTIONS (3)
  - Sensory disturbance [Unknown]
  - Drug effect decreased [Unknown]
  - Somnolence [Not Recovered/Not Resolved]

NARRATIVE: CASE EVENT DATE: 20140808
